FAERS Safety Report 25414031 (Version 1)
Quarter: 2025Q2

REPORT INFORMATION
  Report Type: Spontaneous
  Country: US (occurrence: US)
  Receive Date: 20250609
  Receipt Date: 20250609
  Transmission Date: 20250716
  Serious: No
  Sender: MERZ
  Company Number: US-Merz Pharmaceuticals GmbH-2025050000141

PATIENT

DRUGS (3)
  1. XEOMIN [Suspect]
     Active Substance: INCOBOTULINUMTOXINA
     Indication: Skin wrinkling
  2. XEOMIN [Suspect]
     Active Substance: INCOBOTULINUMTOXINA
     Indication: Skin cosmetic procedure
  3. XEOMIN [Suspect]
     Active Substance: INCOBOTULINUMTOXINA
     Indication: Face lift

REACTIONS (3)
  - Headache [Not Recovered/Not Resolved]
  - Injection site pain [Not Recovered/Not Resolved]
  - Product use in unapproved indication [Unknown]
